FAERS Safety Report 21859435 (Version 1)
Quarter: 2023Q1

REPORT INFORMATION
  Report Type: Spontaneous
  Country: US (occurrence: None)
  Receive Date: 20230112
  Receipt Date: 20230112
  Transmission Date: 20230417
  Serious: Yes (Other)
  Sender: FDA-Public Use
  Company Number: None

PATIENT
  Age: 32 Year
  Sex: Female
  Weight: 63 kg

DRUGS (5)
  1. OCREVUS [Suspect]
     Active Substance: OCRELIZUMAB
     Indication: Multiple sclerosis
     Dosage: OTHER QUANTITY : 600 MG;?OTHER FREQUENCY : EVERY 6 MO;?
     Route: 042
     Dates: start: 20220615, end: 20230111
  2. BENADRYL [Concomitant]
     Active Substance: DIPHENHYDRAMINE HYDROCHLORIDE
  3. PREDNISONE [Concomitant]
     Active Substance: PREDNISONE
  4. PEPCID [Concomitant]
     Active Substance: FAMOTIDINE
  5. SOLU-MEDROL [Concomitant]
     Active Substance: METHYLPREDNISOLONE SODIUM SUCCINATE

REACTIONS (5)
  - Infusion related reaction [None]
  - Throat irritation [None]
  - Pharyngeal swelling [None]
  - Swollen tongue [None]
  - Dyspnoea [None]

NARRATIVE: CASE EVENT DATE: 20230112
